FAERS Safety Report 9298614 (Version 1)
Quarter: 2013Q2

REPORT INFORMATION
  Report Type: Spontaneous
  Country: CH (occurrence: CH)
  Receive Date: 20130520
  Receipt Date: 20130520
  Transmission Date: 20140414
  Serious: Yes (Other)
  Sender: FDA-Public Use
  Company Number: CH-ELI_LILLY_AND_COMPANY-CH201305003532

PATIENT
  Sex: Female

DRUGS (5)
  1. FLUCTINE [Suspect]
     Dosage: 20 MG, QD
     Route: 048
  2. ABILIFY [Concomitant]
     Dosage: 20 MG, QD
     Route: 048
  3. DALMADORM [Concomitant]
     Indication: PSYCHOTIC DISORDER
     Dosage: 30 MG, QD
     Route: 048
  4. LEXOTANIL [Concomitant]
     Dosage: 1.5 MG, QD
     Route: 048
  5. EUTHYROX [Concomitant]
     Indication: HYPOTHYROIDISM
     Dosage: 125 UG, QD
     Route: 048

REACTIONS (2)
  - Pre-eclampsia [Unknown]
  - Maternal exposure during pregnancy [Recovered/Resolved]
